FAERS Safety Report 9671074 (Version 1)
Quarter: 2013Q4

REPORT INFORMATION
  Report Type: Spontaneous
  Country: US (occurrence: US)
  Receive Date: 20131106
  Receipt Date: 20131106
  Transmission Date: 20140711
  Serious: No
  Sender: FDA-Public Use
  Company Number: US-PFIZER INC-2013312665

PATIENT
  Age: 68 Year
  Sex: Male
  Weight: 77.1 kg

DRUGS (4)
  1. ZOLOFT [Concomitant]
     Dosage: 50 MG, 1X/DAY
  2. VIAGRA [Suspect]
     Indication: ERECTILE DYSFUNCTION
     Dosage: 25 MG, AS NEEDED
  3. LORAZEPAM [Concomitant]
     Dosage: 1 MG, 2X/DAY
  4. LEVOTHYROXINE [Concomitant]
     Dosage: 0.15 MG, 1X/DAY

REACTIONS (1)
  - Photophobia [Recovered/Resolved]
